FAERS Safety Report 5885160-8 (Version None)
Quarter: 2008Q3

REPORT INFORMATION
  Report Type: 
  Country: None (occurrence: None)
  Receive Date: 20080912
  Receipt Date: 20080828
  Transmission Date: 20090109
  Serious: Yes (Other)
  Sender: FDA-Public Use
  Company Number: 2008S1015688

PATIENT
  Age: 57 Year
  Sex: Female

DRUGS (1)
  1. BYSTOLIC [Suspect]
     Indication: HYPERTENSION
     Dosage: 5 MG;DAILY;ORAL
     Route: 048
     Dates: start: 20080807, end: 20080810

REACTIONS (2)
  - ABDOMINAL DISTENSION [None]
  - OEDEMA PERIPHERAL [None]
